FAERS Safety Report 20495500 (Version 2)
Quarter: 2022Q2

REPORT INFORMATION
  Report Type: Spontaneous
  Country: CA (occurrence: CA)
  Receive Date: 20220221
  Receipt Date: 20220428
  Transmission Date: 20220720
  Serious: Yes (Hospitalization, Congenital Anomaly, Other)
  Sender: FDA-Public Use
  Company Number: CA-NOVARTISPH-NVSC2022CA035322

PATIENT
  Weight: 1.49 kg

DRUGS (4)
  1. PERINDOPRIL [Suspect]
     Active Substance: PERINDOPRIL
     Indication: Foetal exposure during pregnancy
     Dosage: UNKNOWN MATERNAL DOSE
     Route: 064
  2. LOSARTAN [Suspect]
     Active Substance: LOSARTAN
     Indication: Foetal exposure during pregnancy
     Dosage: UNKNOWN MATERNAL DOSE
     Route: 064
  3. SPIRONOLACTONE [Suspect]
     Active Substance: SPIRONOLACTONE
     Indication: Foetal exposure during pregnancy
     Dosage: UNKNOWN MATERNAL DOSE
     Route: 064
  4. LASIX [Suspect]
     Active Substance: FUROSEMIDE
     Indication: Foetal exposure during pregnancy
     Dosage: UNKNOWN MATERNAL DOSE
     Route: 064

REACTIONS (10)
  - Neonatal respiratory failure [Unknown]
  - Hypocalvaria [Unknown]
  - Gingival disorder [Unknown]
  - Potter^s syndrome [Unknown]
  - Limb deformity [Unknown]
  - Renal tubular dysfunction [Unknown]
  - Low birth weight baby [Unknown]
  - Premature baby [Unknown]
  - Neonatal hypotension [Unknown]
  - Foetal exposure during pregnancy [Unknown]
